FAERS Safety Report 7486439-9 (Version None)
Quarter: 2011Q2

REPORT INFORMATION
  Report Type: 
  Country: None (occurrence: None)
  Receive Date: 20110517
  Receipt Date: 20110510
  Transmission Date: 20111010
  Serious: Yes (Life-Threatening)
  Sender: FDA-Public Use
  Company Number: FR-PFIZER INC-2011095388

PATIENT
  Age: 80 Year
  Sex: Male

DRUGS (3)
  1. TORISEL [Suspect]
     Dosage: 175 MG, CYCLIC
     Dates: start: 20110310, end: 20110310
  2. TORISEL [Suspect]
     Dosage: 75 MG, CYCLIC
     Dates: start: 20110317, end: 20110317
  3. TORISEL [Suspect]
     Indication: NON-HODGKIN'S LYMPHOMA
     Dosage: 175 MG, CYCLIC
     Route: 042
     Dates: start: 20110303, end: 20110303

REACTIONS (3)
  - DISEASE PROGRESSION [None]
  - LYMPHOCYTOSIS [None]
  - NON-HODGKIN'S LYMPHOMA [None]
